FAERS Safety Report 5414838-5 (Version None)
Quarter: 2007Q3

REPORT INFORMATION
  Report Type: 
  Country: None (occurrence: None)
  Receive Date: 20070815
  Receipt Date: 20070810
  Transmission Date: 20080115
  Serious: Yes (Other)
  Sender: FDA-Public Use
  Company Number: PHNU2007DE02807

PATIENT
  Age: 53 Year
  Sex: Male

DRUGS (3)
  1. AREDIA [Suspect]
     Indication: METASTASES TO BONE
     Dosage: 90 MG/DAY
     Route: 042
     Dates: start: 20000101, end: 20000701
  2. BONDRONAT [Suspect]
     Dosage: 3 MG/DAY
     Route: 042
     Dates: start: 20000801, end: 20061101
  3. ACARBOSE [Concomitant]

REACTIONS (9)
  - BONE DISORDER [None]
  - HISTOLOGY ABNORMAL [None]
  - IMPAIRED HEALING [None]
  - JAW DISORDER [None]
  - ORAL SURGERY [None]
  - OSTEOMYELITIS [None]
  - OSTEONECROSIS [None]
  - TOOTH EXTRACTION [None]
  - X-RAY DENTAL [None]
